FAERS Safety Report 8008785-2 (Version None)
Quarter: 2011Q4

REPORT INFORMATION
  Report Type: 
  Country: None (occurrence: None)
  Receive Date: 20111221
  Receipt Date: 20111212
  Transmission Date: 20120403
  Serious: Yes (Disabling, Other)
  Sender: FDA-Public Use
  Company Number: 2011MA002586

PATIENT
  Sex: Male

DRUGS (32)
  1. SPIRIVA [Concomitant]
  2. PROVENTIL [Concomitant]
  3. FLONASE [Concomitant]
  4. POLYETHYLENE 3350 [Concomitant]
  5. HYDROCODONE BITARTRATE AND ACETAMINOPHEN [Concomitant]
  6. VENTOLIN [Concomitant]
  7. LOTREL [Concomitant]
  8. PRIMIDONE [Concomitant]
  9. ALPRAZOLAM [Concomitant]
  10. PREDNISOLONE [Concomitant]
  11. ISORDIL [Concomitant]
  12. CYCLOBENZAPRINE [Concomitant]
  13. ADVAIR DISKUS 100/50 [Concomitant]
  14. AVELOX [Concomitant]
  15. METOCLOPRAMIDE [Suspect]
     Indication: GASTROINTESTINAL DISORDER
     Dosage: 10 MG;QID;PO
     Route: 048
     Dates: start: 20050826, end: 20100503
  16. METHOCARBAMOL [Concomitant]
  17. LORATADINE [Concomitant]
  18. GEMFIBROZIL [Concomitant]
  19. POTASSIUM CHLORIDE [Concomitant]
  20. OMEPRAZOLE [Concomitant]
  21. TRAMADOL HCL [Concomitant]
  22. NITROGLYCERIN [Concomitant]
  23. NIFEDIPINE [Concomitant]
  24. TERBUTALINE [Concomitant]
  25. ENALAPRIL MALEATE [Concomitant]
  26. FUROSEMIDE [Concomitant]
  27. ALBUTEROL [Concomitant]
  28. ACETYLSALICYLIC ACID SRT [Concomitant]
  29. THEOPHYLLINE [Concomitant]
  30. ACIPHEX [Concomitant]
  31. LIPITOR [Concomitant]
  32. CHERATUSSIN [Concomitant]

REACTIONS (3)
  - DRUG INTERACTION [None]
  - TOXICITY TO VARIOUS AGENTS [None]
  - VOMITING [None]
